FAERS Safety Report 8581589-8 (Version None)
Quarter: 2012Q3

REPORT INFORMATION
  Report Type: 
  Country: None (occurrence: None)
  Receive Date: 20120809
  Receipt Date: 20120802
  Transmission Date: 20120928
  Serious: Yes (Hospitalization, Other)
  Sender: FDA-Public Use
  Company Number: US-ASTELLAS-2012US006656

PATIENT
  Age: 59 Year
  Sex: Female
  Weight: 89 kg

DRUGS (2)
  1. AZD6244 HYDROGEN SULFATE [Suspect]
     Indication: LUNG ADENOCARCINOMA
     Dosage: 150 MG, UID/QD
     Route: 048
     Dates: start: 20120706, end: 20120717
  2. ERLOTINIB HYDROCHLORIDE [Suspect]
     Indication: LUNG ADENOCARCINOMA
     Dosage: 100 MG, QHS
     Route: 048
     Dates: start: 20120706, end: 20120717

REACTIONS (8)
  - INCORRECT DOSE ADMINISTERED [None]
  - DEHYDRATION [None]
  - FATIGUE [None]
  - DIVERTICULITIS [None]
  - NAUSEA [None]
  - HAEMOGLOBIN DECREASED [None]
  - DIARRHOEA [None]
  - VOMITING [None]
